FAERS Safety Report 12278451 (Version 4)
Quarter: 2016Q2

REPORT INFORMATION
  Report Type: Spontaneous
  Country: PT (occurrence: PT)
  Receive Date: 20160418
  Receipt Date: 20160517
  Transmission Date: 20160815
  Serious: Yes (Hospitalization)
  Sender: FDA-Public Use
  Company Number: PT-JNJFOC-20160414086

PATIENT
  Age: 71 Year
  Sex: Male
  Weight: 75 kg

DRUGS (6)
  1. TOCILIZUMAB [Suspect]
     Active Substance: TOCILIZUMAB
     Indication: RHEUMATOID ARTHRITIS
     Dosage: 26 MONTHS
     Route: 065
     Dates: start: 20110414, end: 201303
  2. RITUXIMAB [Suspect]
     Active Substance: RITUXIMAB
     Indication: RHEUMATOID ARTHRITIS
     Dosage: 34 MONTHS
     Route: 058
     Dates: start: 20130111, end: 20150324
  3. ADALIMUMAB [Suspect]
     Active Substance: ADALIMUMAB
     Indication: RHEUMATOID ARTHRITIS
     Dosage: 76 MONTHS
     Route: 058
     Dates: start: 20050102, end: 20110414
  4. INFLIXIMAB, RECOMBINANT [Suspect]
     Active Substance: INFLIXIMAB
     Indication: RHEUMATOID ARTHRITIS
     Dosage: 61 MONTHS
     Route: 042
     Dates: start: 2000, end: 20050101
  5. METHOTREXATE [Suspect]
     Active Substance: METHOTREXATE
     Indication: RHEUMATOID ARTHRITIS
     Route: 048
  6. PREDNISOLONE. [Concomitant]
     Active Substance: PREDNISOLONE
     Indication: RHEUMATOID ARTHRITIS
     Route: 065

REACTIONS (3)
  - Adenocarcinoma of colon [Unknown]
  - Metastases to peritoneum [Unknown]
  - Metastases to liver [Unknown]

NARRATIVE: CASE EVENT DATE: 201603
